FAERS Safety Report 10731730 (Version 1)
Quarter: 2015Q1

REPORT INFORMATION
  Report Type: Spontaneous
  Country: US (occurrence: US)
  Receive Date: 20150123
  Receipt Date: 20150123
  Transmission Date: 20150721
  Serious: Yes (Death)
  Sender: FDA-Public Use
  Company Number: US-ROCHE-1524664

PATIENT
  Sex: Female

DRUGS (6)
  1. RITUXAN [Suspect]
     Active Substance: RITUXIMAB
     Dosage: 23/APR/2007 (CYCLE 2), 23/APR/2007 (CYCLE 2), 30/APR/2007 (CYCLE3), 07/MAY/2007 (CYCLE 4),
     Route: 042
     Dates: start: 20070423
  2. DECADRON [Concomitant]
     Active Substance: DEXAMETHASONE
     Route: 042
  3. RITUXAN [Suspect]
     Active Substance: RITUXIMAB
     Indication: CHRONIC LYMPHOCYTIC LEUKAEMIA
     Dosage: CYCLE 1
     Route: 042
     Dates: start: 20070416
  4. TYLENOL [Concomitant]
     Active Substance: ACETAMINOPHEN
     Route: 048
  5. VITAMIN B12 [Concomitant]
     Active Substance: CYANOCOBALAMIN
     Route: 058
  6. RITUXAN [Suspect]
     Active Substance: RITUXIMAB
     Dosage: 14/MAY/2007 (CYCLE 5), 21/MAY/2007 (CYCLE 6), 29/MAY/2007 (CYCLE 7), 04/JUN/2007 (CYCLE 8), 20/SEP/2
     Route: 042
     Dates: start: 20070514, end: 20090311

REACTIONS (1)
  - Progressive multifocal leukoencephalopathy [Fatal]
